FAERS Safety Report 10490671 (Version 2)
Quarter: 2014Q4

REPORT INFORMATION
  Report Type: Spontaneous
  Country: US (occurrence: US)
  Receive Date: 20141002
  Receipt Date: 20141002
  Transmission Date: 20150528
  Serious: No
  Sender: FDA-Public Use
  Company Number: US-GLAXOSMITHKLINE-A1038766A

PATIENT
  Age: 61 Year
  Sex: Male

DRUGS (10)
  1. LISINOPRIL. [Concomitant]
     Active Substance: LISINOPRIL
  2. ROBAXIN [Concomitant]
     Active Substance: METHOCARBAMOL
  3. PROVENTIL [Concomitant]
     Active Substance: ALBUTEROL
  4. ACIPHEX [Concomitant]
     Active Substance: RABEPRAZOLE SODIUM
  5. TRAZODONE [Concomitant]
     Active Substance: TRAZODONE HYDROCHLORIDE
  6. ADVAIR HFA [Suspect]
     Active Substance: FLUTICASONE PROPIONATE\SALMETEROL XINAFOATE
     Indication: ALLERGY TO ANIMAL
     Route: 055
     Dates: start: 2009
  7. TOPIRAMATE. [Concomitant]
     Active Substance: TOPIRAMATE
  8. CIALIS [Concomitant]
     Active Substance: TADALAFIL
  9. UNKNOWN INJECTION [Concomitant]
     Active Substance: UNSPECIFIED INGREDIENT
     Indication: FOOT DEFORMITY
  10. NAPROXEN. [Concomitant]
     Active Substance: NAPROXEN

REACTIONS (4)
  - Dyspnoea [Recovered/Resolved]
  - Underdose [Recovered/Resolved]
  - Product quality issue [Recovered/Resolved]
  - Drug ineffective [Recovered/Resolved]

NARRATIVE: CASE EVENT DATE: 201308
